FAERS Safety Report 5119208-5 (Version None)
Quarter: 2006Q4

REPORT INFORMATION
  Report Type: 
  Country: None (occurrence: None)
  Receive Date: 20061003
  Receipt Date: 20060922
  Transmission Date: 20070319
  Serious: Yes (Death, Life-Threatening)
  Sender: FDA-Public Use
  Company Number: GB-JNJFOC-20050604594

PATIENT

DRUGS (3)
  1. HALOPERIDOL [Suspect]
     Indication: DRUG USE FOR UNKNOWN INDICATION
     Dosage: 10 MG NOCTE, 5 MG BD TAB
  2. OLANZAPINE [Concomitant]
  3. PROCYCLIDINE HYDROCHLORIDE 2MG TAB [Concomitant]

REACTIONS (3)
  - HYPERTENSION [None]
  - SUBARACHNOID HAEMORRHAGE [None]
  - SUDDEN DEATH [None]
